FAERS Safety Report 19449280 (Version 2)
Quarter: 2021Q3

REPORT INFORMATION
  Report Type: Spontaneous
  Country: RO (occurrence: RO)
  Receive Date: 20210622
  Receipt Date: 20210713
  Transmission Date: 20211014
  Serious: Yes (Death, Other)
  Sender: FDA-Public Use
  Company Number: RO-MYLANLABS-2021M1036052

PATIENT
  Age: 47 Year
  Sex: Female

DRUGS (7)
  1. BLEOMYCIN [Suspect]
     Active Substance: BLEOMYCIN SULFATE
     Indication: ANGIOCENTRIC LYMPHOMA
     Dosage: 10 MG/M2, QCY CYCLES OF 21 DAYS WITH NO DRUGS ON DAYS 15?21
  2. PREDNISONE. [Suspect]
     Active Substance: PREDNISONE
     Indication: ANGIOCENTRIC LYMPHOMA
     Dosage: 40 MG/M2, QCY CYCLES OF 21 DAYS WITH NO DRUGS ON DAYS 15?21
  3. VINCRISTINE SULFATE. [Suspect]
     Active Substance: VINCRISTINE SULFATE
     Indication: ANGIOCENTRIC LYMPHOMA
     Dosage: 1.4 MG/M2, QCY CYCLES OF 21 DAYS WITH NO DRUGS ON DAYS 15?21
  4. CYCLOPHOSPHAMIDE. [Suspect]
     Active Substance: CYCLOPHOSPHAMIDE
     Indication: ANGIOCENTRIC LYMPHOMA
     Dosage: 750 MG/M2, QCY CYCLES OF 21 DAYS WITH NO DRUGS ON DAYS 15?21
  5. DOXORUBICIN [Suspect]
     Active Substance: DOXORUBICIN
     Indication: ANGIOCENTRIC LYMPHOMA
     Dosage: 30 MG/M2, QCY CYCLES OF 21 DAYS WITH NO DRUGS ON DAYS 15?21
  6. PROCARBAZINE [Suspect]
     Active Substance: PROCARBAZINE
     Indication: ANGIOCENTRIC LYMPHOMA
     Dosage: 100 MG/M2, QCY CYCLES OF 21 DAYS WITH NO DRUGS ON DAYS 15?21
  7. ETOPOSIDE. [Suspect]
     Active Substance: ETOPOSIDE
     Indication: ANGIOCENTRIC LYMPHOMA
     Dosage: 150 MG/M2, QCY CYCLES OF 21 DAYS WITH NO DRUGS ON DAYS 15?21

REACTIONS (1)
  - Liver disorder [Fatal]
